FAERS Safety Report 22773678 (Version 3)
Quarter: 2023Q4

REPORT INFORMATION
  Report Type: Spontaneous
  Country: US (occurrence: US)
  Receive Date: 20230801
  Receipt Date: 20231120
  Transmission Date: 20240110
  Serious: Yes (Hospitalization, Disabling, Other)
  Sender: FDA-Public Use
  Company Number: US-ORGANON-O2308USA000091

PATIENT
  Sex: Female

DRUGS (2)
  1. FOSAMAX [Suspect]
     Active Substance: ALENDRONATE SODIUM
     Indication: Fibromyalgia
     Dosage: UNK
     Route: 048
     Dates: start: 2004, end: 2010
  2. FOSAMAX [Suspect]
     Active Substance: ALENDRONATE SODIUM
     Indication: Arthritis

REACTIONS (25)
  - Bedridden [Not Recovered/Not Resolved]
  - Limb injury [Not Recovered/Not Resolved]
  - Systemic lupus erythematosus [Not Recovered/Not Resolved]
  - Cardiac failure congestive [Unknown]
  - Fall [Not Recovered/Not Resolved]
  - Fracture [Not Recovered/Not Resolved]
  - Wrist fracture [Not Recovered/Not Resolved]
  - Head injury [Not Recovered/Not Resolved]
  - Seizure [Unknown]
  - Arthritis [Unknown]
  - Tooth loss [Not Recovered/Not Resolved]
  - Jaw disorder [Not Recovered/Not Resolved]
  - Eating disorder [Unknown]
  - Speech disorder [Unknown]
  - Insomnia [Not Recovered/Not Resolved]
  - Bone loss [Unknown]
  - Hypoaesthesia [Not Recovered/Not Resolved]
  - Back pain [Unknown]
  - Headache [Not Recovered/Not Resolved]
  - Dizziness [Not Recovered/Not Resolved]
  - Anxiety [Unknown]
  - Depression [Unknown]
  - Intervertebral disc degeneration [Unknown]
  - Post-traumatic stress disorder [Unknown]
  - Product use in unapproved indication [Unknown]

NARRATIVE: CASE EVENT DATE: 20040101
